FAERS Safety Report 9780879 (Version 2)
Quarter: 2013Q4

REPORT INFORMATION
  Report Type: Spontaneous
  Country: US (occurrence: US)
  Receive Date: 20131224
  Receipt Date: 20131224
  Transmission Date: 20140711
  Serious: No
  Sender: FDA-Public Use
  Company Number: US-US-EMD SERONO, INC.-7217504

PATIENT
  Sex: Female

DRUGS (15)
  1. GONAL-F [Suspect]
     Indication: POLYCYSTIC OVARIES
     Dosage: 23 CYCLES OF GONAL F
     Route: 058
  2. GONAL-F [Suspect]
     Route: 058
  3. CLARITIN                           /00917501/ [Concomitant]
     Indication: PRODUCT USED FOR UNKNOWN INDICATION
  4. LUPRON [Concomitant]
     Indication: PRODUCT USED FOR UNKNOWN INDICATION
  5. CLOMID [Concomitant]
     Indication: PRODUCT USED FOR UNKNOWN INDICATION
  6. LEVOTHYROXINE [Concomitant]
     Indication: HYPOTHYROIDISM
  7. LEVOTHYROXINE [Concomitant]
  8. SYNTHROID [Concomitant]
     Indication: HYPOTHYROIDISM
  9. SYNTHROID [Concomitant]
  10. SYNTHROID [Concomitant]
  11. ZYRTEC                             /00884302/ [Concomitant]
     Indication: PRODUCT USED FOR UNKNOWN INDICATION
  12. METHYLDOPA [Concomitant]
     Indication: DEPRESSION
  13. TRIAMTERENE [Concomitant]
     Indication: PRODUCT USED FOR UNKNOWN INDICATION
  14. REPRONEX                           /01277604/ [Concomitant]
     Indication: PRODUCT USED FOR UNKNOWN INDICATION
  15. ENDOMETRION [Concomitant]
     Indication: PRODUCT USED FOR UNKNOWN INDICATION

REACTIONS (9)
  - Candida test positive [Unknown]
  - Diarrhoea [Unknown]
  - Dyspepsia [Unknown]
  - Muscle spasms [Recovered/Resolved]
  - Fatigue [Unknown]
  - Alopecia [Unknown]
  - Weight increased [Unknown]
  - Insomnia [Unknown]
  - Drug ineffective [Unknown]
